FAERS Safety Report 9012233 (Version 1)
Quarter: 2013Q1

REPORT INFORMATION
  Report Type: Spontaneous
  Country: FR (occurrence: FR)
  Receive Date: 20130114
  Receipt Date: 20130114
  Transmission Date: 20140127
  Serious: Yes (Hospitalization)
  Sender: FDA-Public Use
  Company Number: FR-BAYER-2013-004113

PATIENT
  Age: 84 Year
  Sex: Female

DRUGS (12)
  1. CIFLOX [Suspect]
     Dosage: UNK
     Dates: start: 2012
  2. ROCEPHIN [Suspect]
     Dosage: UNK
     Dates: start: 2012
  3. PIPERACILLIN [Suspect]
     Dosage: UNK
     Dates: start: 2012
  4. SOTALEX [Concomitant]
     Dosage: 80, ? TAB MORNING, MIDDAY AND EVENING.
  5. LIPANTHYL [Concomitant]
     Dosage: 200, 1 PER DAY
  6. LASILIX [Concomitant]
     Dosage: 20, 1 MORNING
  7. PREVISCAN [Concomitant]
     Dosage: ? EVENING
  8. DIFFU K [Concomitant]
  9. TOPALGIC [TRAMADOL HYDROCHLORIDE] [Concomitant]
     Dosage: 100 SR, 3 PER DAY.
  10. COVERSYL [Concomitant]
     Dosage: 10, 1 PER DAY
  11. CALCIUM W/COLECALCIFEROL [Concomitant]
  12. IMPORTAL [Concomitant]
     Dosage: 2 PER DAY.

REACTIONS (2)
  - Disturbance in attention [Recovering/Resolving]
  - Confusional state [Recovering/Resolving]
